FAERS Safety Report 4870716-1 (Version None)
Quarter: 2006Q1

REPORT INFORMATION
  Report Type: 
  Country: None (occurrence: None)
  Receive Date: 20060103
  Receipt Date: 20051220
  Transmission Date: 20060701
  Serious: Yes (Hospitalization)
  Sender: FDA-Public Use
  Company Number: GB-GLAXOSMITHKLINE-B0404980A

PATIENT
  Age: 45 Year
  Sex: Male

DRUGS (6)
  1. ZIDOVUDINE [Suspect]
     Indication: HIV INFECTION
     Route: 065
  2. LAMIVUDINE [Suspect]
     Indication: HIV INFECTION
     Route: 065
  3. LOPINAVIR [Suspect]
     Indication: HIV INFECTION
     Route: 065
  4. RITONAVIR [Suspect]
     Indication: HIV INFECTION
     Route: 065
  5. ANTI-TUBERCULOSIS MEDICATION [Concomitant]
  6. RIFABUTIN [Concomitant]

REACTIONS (8)
  - ACUTE RESPIRATORY FAILURE [None]
  - CREPITATIONS [None]
  - CYANOSIS [None]
  - DYSPNOEA [None]
  - IMMUNE RECONSTITUTION SYNDROME [None]
  - MYCOBACTERIUM KANSASII INFECTION [None]
  - PYREXIA [None]
  - TACHYPNOEA [None]
